FAERS Safety Report 10086218 (Version 2)
Quarter: 2014Q2

REPORT INFORMATION
  Report Type: Spontaneous
  Country: US (occurrence: None)
  Receive Date: 20140416
  Receipt Date: 20140502
  Transmission Date: 20141212
  Serious: Yes (Death, Hospitalization, Other)
  Sender: FDA-Public Use
  Company Number: US-000981

PATIENT
  Sex: Female
  Weight: 52.16 kg

DRUGS (2)
  1. GATTEX [Suspect]
     Indication: SHORT-BOWEL SYNDROME
     Dosage: (0.26 ML QD SUBCUTANEOUS)
     Route: 058
     Dates: start: 20130308
  2. SOLUTIONS FOR PARENTERAL NUTRITION [Concomitant]

REACTIONS (3)
  - Haemorrhage intracranial [None]
  - Hepatic enzyme increased [None]
  - Intracranial aneurysm [None]
